FAERS Safety Report 9451523 (Version 2)
Quarter: 2013Q4

REPORT INFORMATION
  Report Type: Spontaneous
  Country: NZ (occurrence: NZ)
  Receive Date: 20130811
  Receipt Date: 20131023
  Transmission Date: 20140711
  Serious: Yes (Hospitalization, Other)
  Sender: FDA-Public Use
  Company Number: NZ-ELI_LILLY_AND_COMPANY-NZ201306007621

PATIENT
  Age: 22 Year
  Sex: Female
  Weight: 40 kg

DRUGS (4)
  1. STRATTERA [Suspect]
     Indication: ATTENTION DEFICIT/HYPERACTIVITY DISORDER
     Dosage: UNK, UNKNOWN
     Route: 048
     Dates: start: 20130131, end: 20130304
  2. METHYLPHENIDATE [Suspect]
     Indication: ATTENTION DEFICIT/HYPERACTIVITY DISORDER
     Dosage: UNK, UNKNOWN
     Route: 065
  3. OLANZAPINE [Concomitant]
     Dosage: 2.5 MG, UNKNOWN
     Route: 048
  4. OLANZAPINE [Concomitant]
     Dosage: 2.5 MG, PRN
     Route: 048

REACTIONS (8)
  - Psychotic disorder [Unknown]
  - Mental impairment [Unknown]
  - Suicide attempt [Recovered/Resolved]
  - Weight decreased [Unknown]
  - Binge eating [Unknown]
  - Insomnia [Unknown]
  - Drug ineffective [Unknown]
  - Feeling abnormal [Unknown]
